FAERS Safety Report 10570757 (Version 1)
Quarter: 2014Q4

REPORT INFORMATION
  Report Type: Spontaneous
  Country: US (occurrence: None)
  Receive Date: 20141106
  Receipt Date: 20141106
  Transmission Date: 20150529
  Serious: Yes (Hospitalization)
  Sender: FDA-Public Use
  Company Number: None

PATIENT
  Age: 63 Year
  Sex: Male
  Weight: 90.9 kg

DRUGS (2)
  1. SULFAMETHOXAZOLE/TRIMETHOPRIM [Suspect]
     Active Substance: SULFAMETHOXAZOLE\TRIMETHOPRIM
     Indication: URINARY TRACT INFECTION
     Dosage: 1 TAB, BID, PO?
     Route: 048
     Dates: start: 20140714, end: 20140811
  2. SPIRONOLACTONE. [Suspect]
     Active Substance: SPIRONOLACTONE
     Indication: HYPERTENSION
     Dosage: 25 MG, AM, PO
     Route: 048
     Dates: start: 20121012, end: 20140811

REACTIONS (3)
  - Hyperkalaemia [None]
  - Acute kidney injury [None]
  - Dyspnoea [None]

NARRATIVE: CASE EVENT DATE: 20140807
